FAERS Safety Report 15335283 (Version 2)
Quarter: 2018Q4

REPORT INFORMATION
  Report Type: Spontaneous
  Country: FR (occurrence: FR)
  Receive Date: 20180830
  Receipt Date: 20181009
  Transmission Date: 20190204
  Serious: Yes (Hospitalization)
  Sender: FDA-Public Use
  Company Number: PHHY2018FR081021

PATIENT
  Age: 51 Year
  Sex: Female

DRUGS (5)
  1. HEXASPRAY [Suspect]
     Active Substance: BICLOTYMOL
     Indication: TONSILLITIS
     Dosage: 6 ?G/L, QD (2 PULVERISATION 3X PAR JOUR)
     Route: 002
     Dates: start: 20171207, end: 20171207
  2. DIMETANE SANS SUCRE [Suspect]
     Active Substance: BROMPHENIRAMINE MALEATE\PHOLCODINE
     Indication: TONSILLITIS
     Dosage: 3 ?G/L, QD (1 CUILLIERE A SOUPE 3X PAR JOUR)
     Route: 048
     Dates: start: 20171207, end: 20171207
  3. PARACETAMOL [Suspect]
     Active Substance: ACETAMINOPHEN
     Indication: TONSILLITIS
     Dosage: 3 G, QD
     Route: 048
     Dates: start: 20171207, end: 20171207
  4. AMOXICILLIN. [Suspect]
     Active Substance: AMOXICILLIN
     Indication: TONSILLITIS
     Dosage: 2 G, QD
     Route: 048
     Dates: start: 20171207, end: 20171207
  5. NECYRANE [Suspect]
     Active Substance: RITIOMETAN
     Indication: TONSILLITIS
     Dosage: 6 ?G/L, QD (2 PULVERISATION 3X PAR JOUR)
     Route: 045
     Dates: start: 20171207, end: 20171207

REACTIONS (4)
  - Paraesthesia [Recovered/Resolved]
  - Hypersensitivity [Recovered/Resolved]
  - Chest discomfort [Recovered/Resolved]
  - Urticaria [Recovered/Resolved]

NARRATIVE: CASE EVENT DATE: 20171207
